FAERS Safety Report 4620593-9 (Version None)
Quarter: 2005Q1

REPORT INFORMATION
  Report Type: 
  Country: None (occurrence: None)
  Receive Date: 20050328
  Receipt Date: 20041223
  Transmission Date: 20050727
  Serious: Yes (Death, Other)
  Sender: FDA-Public Use
  Company Number: US-BRISTOL-MYERS SQUIBB COMPANY-12806469

PATIENT
  Age: 82 Year
  Sex: Female
  Weight: 79 kg

DRUGS (21)
  1. CARBOPLATIN [Suspect]
     Indication: BREAST CANCER METASTATIC
     Dosage: PREVIOUSLY RECEIVED 9 CYCLES AT 300 MG Q3WK FROM 24-JUN-2003 TO 30-DEC-2003.
     Route: 042
     Dates: start: 20041221, end: 20041221
  2. TAXOL [Concomitant]
     Indication: BREAST CANCER METASTATIC
     Route: 042
     Dates: start: 20041221, end: 20041221
  3. DECADRON [Concomitant]
     Indication: PREMEDICATION
     Route: 042
     Dates: start: 20041221
  4. KYTRIL [Concomitant]
     Indication: PREMEDICATION
     Route: 042
     Dates: start: 20041221
  5. BENADRYL [Concomitant]
     Indication: PREMEDICATION
     Route: 042
     Dates: start: 20041221
  6. CALAN [Concomitant]
     Dates: start: 20030429, end: 20041221
  7. SYNTHROID [Concomitant]
     Dates: start: 20030429, end: 20041221
  8. FOSAMAX [Concomitant]
     Dates: start: 20030429, end: 20041221
  9. ARIMIDEX [Concomitant]
  10. M.V.I. [Concomitant]
     Dates: start: 20030429, end: 20041221
  11. CALCIUM GLUCONATE [Concomitant]
     Dates: start: 20030429, end: 20041221
  12. MILK THISTLE [Concomitant]
     Dates: start: 20030429, end: 20041221
  13. SELENIUM TRACE METAL ADDITIVE [Concomitant]
     Dates: start: 20030429, end: 20041221
  14. VITAMIN E [Concomitant]
     Dates: start: 20030429, end: 20041221
  15. ALLEGRA [Concomitant]
     Dates: start: 20040914, end: 20041221
  16. OCUVITE [Concomitant]
     Dates: start: 20041026, end: 20041221
  17. VITAMIN C [Concomitant]
     Dates: start: 20030429, end: 20041221
  18. LECITHIN [Concomitant]
     Dates: start: 20041026, end: 20041221
  19. TEMAZEPAM [Concomitant]
     Dates: start: 20041026, end: 20041221
  20. NADOLOL [Concomitant]
     Dates: start: 20041026
  21. ASPIRIN [Concomitant]
     Dates: start: 20041026

REACTIONS (11)
  - COMA [None]
  - DEATH [None]
  - DYSPNOEA [None]
  - ERYTHEMA [None]
  - FLUSHING [None]
  - HAEMATOCRIT DECREASED [None]
  - INFUSION RELATED REACTION [None]
  - PLATELET COUNT DECREASED [None]
  - RED BLOOD CELL COUNT DECREASED [None]
  - RESPIRATORY ARREST [None]
  - SYNCOPE [None]
